FAERS Safety Report 11969625 (Version 1)
Quarter: 2016Q1

REPORT INFORMATION
  Report Type: Spontaneous
  Country: US (occurrence: None)
  Receive Date: 20160119
  Receipt Date: 20160119
  Transmission Date: 20160526
  Serious: Yes (Hospitalization)
  Sender: FDA-Public Use
  Company Number: 2015-US-010708

PATIENT
  Age: 9 Year
  Sex: Male

DRUGS (5)
  1. ERWINAZE [Suspect]
     Active Substance: ASPARAGINASE ERWINIA CHRYSANTHEMI
     Indication: ACUTE LYMPHOCYTIC LEUKAEMIA
     Dosage: 37000 IU (25,000 IU/M2), TIW, INTRAVENOUS
     Route: 042
     Dates: start: 20150210, end: 20150713
  2. BENADRYL [Concomitant]
     Active Substance: DIPHENHYDRAMINE HYDROCHLORIDE
  3. KYTRIL (GRANISETRON HYDROCHLORIDE) [Concomitant]
  4. AMLODIPINE (AMLODIPINE BESILATE) [Concomitant]
  5. METHOTREXATE [Concomitant]
     Active Substance: METHOTREXATE

REACTIONS (1)
  - Hypersensitivity [None]

NARRATIVE: CASE EVENT DATE: 20150713
